FAERS Safety Report 11084427 (Version 3)
Quarter: 2015Q2

REPORT INFORMATION
  Report Type: Spontaneous
  Country: JP (occurrence: JP)
  Receive Date: 20150503
  Receipt Date: 20150603
  Transmission Date: 20150821
  Serious: Yes (Death, Life-Threatening, Other)
  Sender: FDA-Public Use
  Company Number: JP-009507513-1505JPN000079

PATIENT
  Age: 77 Year
  Sex: Male
  Weight: 48 kg

DRUGS (5)
  1. TEICOPLANIN [Concomitant]
     Active Substance: TEICOPLANIN
     Indication: PNEUMONIA STAPHYLOCOCCAL
     Dosage: 400 MG ONCE A DAY
     Route: 051
     Dates: start: 20130708, end: 20130721
  2. CANCIDAS [Suspect]
     Active Substance: CASPOFUNGIN ACETATE
     Indication: SYSTEMIC CANDIDA
     Dosage: 50 MG ONCE A DAY
     Route: 041
     Dates: start: 20130720, end: 20130722
  3. CANCIDAS [Suspect]
     Active Substance: CASPOFUNGIN ACETATE
     Indication: SYSTEMIC CANDIDA
     Dosage: 70 MG, ONCE
     Route: 041
     Dates: start: 20130719, end: 20130719
  4. PREDONINE [Concomitant]
     Active Substance: PREDNISOLONE\PREDNISOLONE ACETATE\PREDNISOLONE SODIUM SUCCINATE
     Indication: PSORIASIS
     Dosage: 10 MG ONCE A DAY
     Route: 051
     Dates: start: 20130623, end: 20130722
  5. CIPROFLOXACIN. [Concomitant]
     Active Substance: CIPROFLOXACIN
     Indication: PNEUMONIA
     Dosage: 200 MG ONCE A DAY
     Route: 051
     Dates: start: 20130708, end: 20130721

REACTIONS (3)
  - Altered state of consciousness [Fatal]
  - Cerebral haemorrhage [Fatal]
  - Pneumonia [Not Recovered/Not Resolved]

NARRATIVE: CASE EVENT DATE: 20130722
